FAERS Safety Report 11521333 (Version 1)
Quarter: 2015Q3

REPORT INFORMATION
  Report Type: Spontaneous
  Country: US (occurrence: US)
  Receive Date: 20150918
  Receipt Date: 20150918
  Transmission Date: 20151125
  Serious: Yes (Other)
  Sender: FDA-Public Use
  Company Number: US-ROCHE-700245

PATIENT
  Age: 46 Year
  Sex: Female
  Weight: 85.3 kg

DRUGS (24)
  1. LORATADINE. [Concomitant]
     Active Substance: LORATADINE
     Route: 065
  2. CHOLECALCIFEROL [Concomitant]
     Active Substance: CHOLECALCIFEROL
     Dosage: VITAMIN D 1000 UNIT CAPS
     Route: 065
  3. SKELAXIN [Concomitant]
     Active Substance: METAXALONE
     Indication: MUSCLE SPASMS
     Route: 048
  4. MACROBID [Concomitant]
     Active Substance: NITROFURANTOIN\NITROFURANTOIN MONOHYDRATE
     Route: 048
  5. CORTEF [Concomitant]
     Active Substance: HYDROCORTISONE
     Route: 065
  6. ALBUTEROL SULFATE. [Concomitant]
     Active Substance: ALBUTEROL SULFATE
     Dosage: NEBULIZER, 0.083 PER NEB-CAN USE UPTO 4 TIMES DAILY
     Route: 065
  7. TRIDESILON CREAM [Concomitant]
     Dosage: APPLY TO AFFECTED AREAS 3 TIMES A DAY PRN
     Route: 065
  8. DICLOFENAC [Concomitant]
     Active Substance: DICLOFENAC
     Indication: HEADACHE
     Dosage: 1-2 AT HEADACHE ONSET
     Route: 065
  9. GLIPIZIDE. [Concomitant]
     Active Substance: GLIPIZIDE
     Dosage: NAME: GLIPIZIDE XR24H-TAB, ONE TAB IN AM
     Route: 065
  10. OMEPRAZOLE. [Concomitant]
     Active Substance: OMEPRAZOLE
     Dosage: NAME:OMEPRAZOLE CPDR
     Route: 048
  11. SAVELLA [Concomitant]
     Active Substance: MILNACIPRAN HYDROCHLORIDE
     Dosage: BY MOUTH
     Route: 048
  12. GLUCOPHAGE [Concomitant]
     Active Substance: METFORMIN HYDROCHLORIDE
     Route: 048
  13. SINGULAIR [Concomitant]
     Active Substance: MONTELUKAST SODIUM
     Dosage: AT BEDTIME
     Route: 065
  14. HYDROXYZINE HCL [Concomitant]
     Active Substance: HYDROXYZINE HYDROCHLORIDE
     Indication: MIGRAINE
     Dosage: TAKE 1-2 TABS EVERY 6 HRS UNTIL HEADACHE BREAKS
     Route: 065
  15. SALBUTAMOL [Concomitant]
     Active Substance: ALBUTEROL
     Dosage: PROAIR HFA 108 (90BASE)MCG/ACT AERS, USE 2 PUFFS AS NEEDED
     Route: 065
  16. CIPRO [Concomitant]
     Active Substance: CIPROFLOXACIN HYDROCHLORIDE
     Route: 048
  17. REBETOL [Suspect]
     Active Substance: RIBAVIRIN
     Indication: HEPATITIS C
     Dosage: DIVIDED DOSES, IN WEEK 16 OF THERAPY, 3 TAB IN AM AND 3 TAB IN HS
     Route: 065
  18. TRIAMCINOLON ACETONID [Concomitant]
     Indication: PRURITUS
     Dosage: AVOID FACE,SKIN AREAS LIMIT TO LESS THAN 3 WEEKS OF CONTINIOUS USE
     Route: 065
  19. PEGASYS [Suspect]
     Active Substance: PEGINTERFERON ALFA-2A
     Indication: HEPATITIS C
     Dosage: FORM: PRE-FILLED SYRINGE, IN WEEK 16 OF THERAPY.
     Route: 058
  20. KLONOPIN [Concomitant]
     Active Substance: CLONAZEPAM
     Dosage: 1 TAB ONE HR BEFORE BED TIME AND 1 TAB AT BED TIME PRN
     Route: 065
  21. MECLIZINE HCL [Concomitant]
     Active Substance: MECLIZINE HYDROCHLORIDE
     Indication: DIZZINESS
     Dosage: AS NEEDED
     Route: 065
  22. ACETAMINOPHEN/HYDROCODONE [Concomitant]
     Active Substance: ACETAMINOPHEN\HYDROCODONE
     Dosage: HYDROCODONE-ACETAMINOHEN 5-00 TABS
     Route: 048
  23. GABAPENTIN. [Concomitant]
     Active Substance: GABAPENTIN
     Route: 065
  24. PYRIDIUM [Concomitant]
     Active Substance: PHENAZOPYRIDINE
     Dosage: AFTER MEAL
     Route: 048

REACTIONS (9)
  - Migraine [Not Recovered/Not Resolved]
  - Fatigue [Not Recovered/Not Resolved]
  - Pyrexia [Recovered/Resolved]
  - Injection site bruising [Not Recovered/Not Resolved]
  - Oropharyngeal pain [Not Recovered/Not Resolved]
  - Headache [Not Recovered/Not Resolved]
  - Blood glucose fluctuation [Unknown]
  - Cough [Not Recovered/Not Resolved]
  - Bronchitis [Unknown]

NARRATIVE: CASE EVENT DATE: 20100417
